FAERS Safety Report 4633677-6 (Version None)
Quarter: 2005Q2

REPORT INFORMATION
  Report Type: 
  Country: None (occurrence: None)
  Receive Date: 20050401
  Receipt Date: 20050217
  Transmission Date: 20051028
  Serious: Yes (Hospitalization)
  Sender: FDA-Public Use
  Company Number: 2005BI003821

PATIENT
  Age: 52 Year
  Sex: Female

DRUGS (1)
  1. NATALIZUMAB [Suspect]
     Indication: MULTIPLE SCLEROSIS
     Dosage: 300 MG;QM;IV
     Route: 042
     Dates: start: 20050131

REACTIONS (4)
  - BLADDER DISORDER [None]
  - DEHYDRATION [None]
  - FATIGUE [None]
  - URINARY TRACT INFECTION [None]
